FAERS Safety Report 22633393 (Version 2)
Quarter: 2023Q2

REPORT INFORMATION
  Report Type: Report from Study
  Country: EE (occurrence: EE)
  Receive Date: 20230623
  Receipt Date: 20230630
  Transmission Date: 20230721
  Serious: Yes (Hospitalization)
  Sender: FDA-Public Use
  Company Number: EE-002147023-NVSC2023EE142856

PATIENT
  Age: 44 Year
  Sex: Male
  Weight: 104 kg

DRUGS (5)
  1. COSENTYX [Suspect]
     Active Substance: SECUKINUMAB
     Indication: Psoriatic arthropathy
     Dosage: 300 MG, QMO (EVERY 4 WEEKS)
     Route: 058
     Dates: start: 20220428, end: 20221208
  2. VIMOVO [Concomitant]
     Active Substance: ESOMEPRAZOLE MAGNESIUM\NAPROXEN
     Indication: Psoriatic arthropathy
     Dosage: 500 MG/20 MG, PRN (AS NEEDED, 2 TIMES PER WEEK)
     Route: 065
     Dates: start: 20150128
  3. PERINDOPRIL [Concomitant]
     Active Substance: PERINDOPRIL
     Indication: Hypertension
     Dosage: 10 MG
     Route: 065
     Dates: start: 20200914
  4. INDAPAMIDE [Concomitant]
     Active Substance: INDAPAMIDE
     Indication: Hypertension
     Dosage: 2.5 MG
     Route: 065
     Dates: start: 20210902
  5. AMLODIPINE BESYLATE [Concomitant]
     Active Substance: AMLODIPINE BESYLATE
     Indication: Hypertension
     Dosage: 10 MG
     Route: 065
     Dates: start: 20201215

REACTIONS (1)
  - Diverticulitis intestinal perforated [Recovered/Resolved]

NARRATIVE: CASE EVENT DATE: 20230102
